FAERS Safety Report 9729063 (Version 2)
Quarter: 2014Q1

REPORT INFORMATION
  Report Type: Spontaneous
  Country: DE (occurrence: DE)
  Receive Date: 20131204
  Receipt Date: 20140116
  Transmission Date: 20141002
  Serious: Yes (Hospitalization)
  Sender: FDA-Public Use
  Company Number: GXKR2013DE003704

PATIENT
  Age: 70 Year
  Sex: Male
  Weight: 80 kg

DRUGS (5)
  1. ALLOPURINOL [Suspect]
     Indication: GOUT
     Dosage: 300 MG, UNK
     Route: 048
     Dates: start: 201308, end: 20131025
  2. CODIOVAN [Concomitant]
     Indication: HYPERTENSION
     Route: 048
     Dates: start: 2010, end: 20131109
  3. CIPROFLOXACIN [Concomitant]
     Indication: STOMATITIS
     Dosage: 500 MG, BID
     Route: 048
     Dates: start: 20131020, end: 20131025
  4. VOLTAREN//DICLOFENAC [Concomitant]
     Route: 061
     Dates: start: 20131015, end: 20131025
  5. IBUPROFEN [Concomitant]
     Indication: PAIN
     Dosage: 600 MG, UNK
     Route: 048
     Dates: start: 20131021, end: 20131025

REACTIONS (8)
  - Stevens-Johnson syndrome [Recovering/Resolving]
  - Skin haemorrhage [Recovering/Resolving]
  - Skin exfoliation [Recovering/Resolving]
  - Stomatitis [Recovering/Resolving]
  - Blister [Recovering/Resolving]
  - Rash [Recovering/Resolving]
  - Tenderness [Recovering/Resolving]
  - Diarrhoea [Recovering/Resolving]
